FAERS Safety Report 18609583 (Version 1)
Quarter: 2020Q4

REPORT INFORMATION
  Report Type: Spontaneous
  Country: US (occurrence: US)
  Receive Date: 20201214
  Receipt Date: 20201214
  Transmission Date: 20210114
  Serious: Yes (Other)
  Sender: FDA-Public Use
  Company Number: US-LUPIN PHARMACEUTICALS INC.-2020-04906

PATIENT
  Sex: Male

DRUGS (1)
  1. OXYCODONE [Suspect]
     Active Substance: OXYCODONE
     Indication: PAIN
     Dosage: FILLED IN AN ORAL SYRINGE
     Route: 065

REACTIONS (4)
  - Drug dependence [Unknown]
  - Intentional product misuse [Unknown]
  - Intentional misuse of drug delivery system [Unknown]
  - Drug diversion [Unknown]
